APPROVED DRUG PRODUCT: MAXIDEX
Active Ingredient: DEXAMETHASONE
Strength: 0.1%
Dosage Form/Route: SUSPENSION/DROPS;OPHTHALMIC
Application: N013422 | Product #001
Applicant: HARROW EYE LLC
Approved: Approved Prior to Jan 1, 1982 | RLD: Yes | RS: Yes | Type: RX